FAERS Safety Report 6703842-2 (Version None)
Quarter: 2010Q2

REPORT INFORMATION
  Report Type: 
  Country: None (occurrence: None)
  Receive Date: 20100430
  Receipt Date: 20100421
  Transmission Date: 20101027
  Serious: Yes (Other)
  Sender: FDA-Public Use
  Company Number: AU-PFIZER INC-2010050621

PATIENT
  Age: 73 Year
  Sex: Female

DRUGS (4)
  1. LIPITOR [Suspect]
     Dosage: 40 MG, UNK
     Dates: start: 20050101
  2. ISOPTIN [Concomitant]
  3. WARFARIN [Concomitant]
  4. PREDNISONE [Concomitant]

REACTIONS (1)
  - POLYMYALGIA RHEUMATICA [None]
